FAERS Safety Report 15206440 (Version 3)
Quarter: 2019Q1

REPORT INFORMATION
  Report Type: Report from Study
  Country: None (occurrence: AT)
  Receive Date: 20180727
  Receipt Date: 20190315
  Transmission Date: 20190417
  Serious: Yes (Hospitalization)
  Sender: FDA-Public Use
  Company Number: AT-ABBVIE-18K-009-2430816-00

PATIENT
  Age: 25 Year
  Sex: Male
  Weight: 73 kg

DRUGS (3)
  1. HUMIRA [Suspect]
     Active Substance: ADALIMUMAB
     Indication: CROHN^S DISEASE
     Route: 058
     Dates: start: 20130801
  2. HUMIRA [Suspect]
     Active Substance: ADALIMUMAB
     Indication: CROHN^S DISEASE
     Route: 058
     Dates: end: 201809
  3. PURINETHOL [Concomitant]
     Active Substance: MERCAPTOPURINE
     Indication: PRODUCT USED FOR UNKNOWN INDICATION

REACTIONS (10)
  - Chills [Recovered/Resolved]
  - Post procedural fever [Recovered/Resolved]
  - Small intestinal resection [Recovered/Resolved]
  - Purulence [Recovered/Resolved]
  - Procedural pain [Recovered/Resolved]
  - Crohn^s disease [Recovered/Resolved]
  - Weight decreased [Recovered/Resolved]
  - Body temperature increased [Recovered/Resolved]
  - Fistula [Recovering/Resolving]
  - Anal abscess [Recovering/Resolving]

NARRATIVE: CASE EVENT DATE: 2018
